FAERS Safety Report 7236476-4 (Version None)
Quarter: 2011Q1

REPORT INFORMATION
  Report Type: 
  Country: None (occurrence: None)
  Receive Date: 20110111
  Receipt Date: 20110111
  Transmission Date: 20110831
  Serious: Yes (Other)
  Sender: FDA-Public Use
  Company Number: FKO201000613

PATIENT
  Age: 77 Year
  Sex: Male

DRUGS (2)
  1. CISPLATIN [Suspect]
     Indication: BLADDER CANCER
     Dosage: (75 MG/M2, ON DAY 1)
  2. GEMCITABINE [Suspect]
     Indication: BLADDER CANCER
     Dosage: (1000 MG/M2)

REACTIONS (8)
  - WOUND INFECTION [None]
  - PAIN IN EXTREMITY [None]
  - FEMORAL ARTERY OCCLUSION [None]
  - PERIPHERAL ARTERIAL OCCLUSIVE DISEASE [None]
  - PLATELET COUNT INCREASED [None]
  - EXTREMITY NECROSIS [None]
  - INFECTION [None]
  - NECROSIS [None]
